FAERS Safety Report 16479013 (Version 1)
Quarter: 2019Q2

REPORT INFORMATION
  Report Type: Spontaneous
  Country: US (occurrence: US)
  Receive Date: 20190626
  Receipt Date: 20190626
  Transmission Date: 20190711
  Serious: No
  Sender: FDA-Public Use
  Company Number: US-JNJFOC-20190627750

PATIENT
  Sex: Female

DRUGS (2)
  1. XARELTO [Suspect]
     Active Substance: RIVAROXABAN
     Indication: PRODUCT USED FOR UNKNOWN INDICATION
     Dosage: BEGAN 15 MG XARELTO TWICE DAILY DURING A HOSPITAL ADMISSION
     Route: 048
     Dates: start: 20190601, end: 20190616
  2. XARELTO [Suspect]
     Active Substance: RIVAROXABAN
     Dosage: TOOK 20 MG ON 16/JUN/2019 NIGHT
     Route: 048
     Dates: start: 20190616

REACTIONS (2)
  - Off label use [Unknown]
  - Incorrect dose administered [Unknown]

NARRATIVE: CASE EVENT DATE: 20190616
